FAERS Safety Report 23531317 (Version 1)
Quarter: 2024Q1

REPORT INFORMATION
  Report Type: Spontaneous
  Country: US (occurrence: US)
  Receive Date: 20240216
  Receipt Date: 20240216
  Transmission Date: 20240410
  Serious: Yes (Other)
  Sender: FDA-Public Use
  Company Number: US-CLOVIS ONCOLOGY-CLO-2023-000108

PATIENT
  Sex: Female

DRUGS (1)
  1. RUBRACA [Suspect]
     Active Substance: RUCAPARIB CAMSYLATE
     Indication: Ovarian cancer
     Dates: start: 20190101

REACTIONS (2)
  - Myelodysplastic syndrome [Unknown]
  - Blood test abnormal [Unknown]
